FAERS Safety Report 11677571 (Version 2)
Quarter: 2015Q4

REPORT INFORMATION
  Report Type: Other
  Country: MX (occurrence: MX)
  Receive Date: 20151028
  Receipt Date: 20151110
  Transmission Date: 20160304
  Serious: Yes (Life-Threatening, Hospitalization, Other)
  Sender: FDA-Public Use
  Company Number: MX-SHIRE-MX201513194

PATIENT
  Age: 12 Year
  Sex: Male
  Weight: 26 kg

DRUGS (1)
  1. ELAPRASE [Suspect]
     Active Substance: IDURSULFASE
     Indication: MUCOPOLYSACCHARIDOSIS II
     Dosage: 12 MG (2 VIALS), UNKNOWN
     Route: 041
     Dates: start: 20131127

REACTIONS (5)
  - Infection [Unknown]
  - Infusion related reaction [Recovered/Resolved]
  - Cardio-respiratory arrest [Recovered/Resolved]
  - Pyrexia [Recovered/Resolved]
  - Asthmatic crisis [Recovering/Resolving]

NARRATIVE: CASE EVENT DATE: 2015
